FAERS Safety Report 8028756-X (Version None)
Quarter: 2012Q1

REPORT INFORMATION
  Report Type: 
  Country: None (occurrence: None)
  Receive Date: 20120106
  Receipt Date: 20111230
  Transmission Date: 20120608
  Serious: Yes (Life-Threatening, Other)
  Sender: FDA-Public Use
  Company Number: CN-MERCK-1112CHN00328

PATIENT
  Age: 52 Year
  Sex: Female

DRUGS (3)
  1. PIOGLITAZONE HYDROCHLORIDE [Concomitant]
     Indication: DIABETES MELLITUS INADEQUATE CONTROL
     Route: 048
     Dates: start: 20111229, end: 20111229
  2. JANUVIA [Suspect]
     Indication: DIABETES MELLITUS INADEQUATE CONTROL
     Route: 048
     Dates: start: 20111229, end: 20111229
  3. INSULIN [Concomitant]
     Indication: DIABETES MELLITUS INADEQUATE CONTROL
     Route: 051
     Dates: start: 20111229, end: 20111229

REACTIONS (9)
  - HEART RATE INCREASED [None]
  - DYSPNOEA [None]
  - HYPOAESTHESIA [None]
  - TACHYPNOEA [None]
  - MUSCLE RIGIDITY [None]
  - ELECTROCARDIOGRAM ST SEGMENT ABNORMAL [None]
  - PALPITATIONS [None]
  - POSTURE ABNORMAL [None]
  - CHEST DISCOMFORT [None]
